FAERS Safety Report 5931704-7 (Version None)
Quarter: 2008Q4

REPORT INFORMATION
  Report Type: 
  Country: None (occurrence: None)
  Receive Date: 20081027
  Receipt Date: 20081021
  Transmission Date: 20090506
  Serious: Yes (Death)
  Sender: FDA-Public Use
  Company Number: TR-ELI_LILLY_AND_COMPANY-TR200810005188

PATIENT
  Sex: Female

DRUGS (3)
  1. HUMULIN 70/30 [Suspect]
     Indication: DIABETES MELLITUS
     Dosage: 18 U, DAILY (1/D) MORNING
     Route: 058
     Dates: start: 20000101
  2. HUMULIN 70/30 [Suspect]
     Dosage: 28 U, DAILY (1/D) EVENING
     Route: 058
     Dates: start: 20000101
  3. DILTIAZEM HCL [Concomitant]
     Indication: HEART RATE IRREGULAR
     Dosage: UNK UNK, 2/D
     Route: 048
     Dates: start: 20040101

REACTIONS (1)
  - CARDIAC DEATH [None]
